FAERS Safety Report 18684705 (Version 2)
Quarter: 2021Q1

REPORT INFORMATION
  Report Type: Report from Study
  Country: NZ (occurrence: NZ)
  Receive Date: 20201230
  Receipt Date: 20210114
  Transmission Date: 20210419
  Serious: Yes (Hospitalization)
  Sender: FDA-Public Use
  Company Number: NZ-ROCHE-2741949

PATIENT
  Age: 70 Year
  Sex: Female
  Weight: 57.6 kg

DRUGS (9)
  1. PARACETAMOL [Concomitant]
     Active Substance: ACETAMINOPHEN
  2. CILAZAPRIL [Concomitant]
     Active Substance: CILAZAPRIL ANHYDROUS
  3. FELODIPINE. [Concomitant]
     Active Substance: FELODIPINE
  4. DIMETHICONE. [Concomitant]
     Active Substance: DIMETHICONE
  5. MAGNESIUM CHLORIDE. [Concomitant]
     Active Substance: MAGNESIUM CHLORIDE
  6. ATEZOLIZUMAB. [Suspect]
     Active Substance: ATEZOLIZUMAB
     Indication: HEPATOCELLULAR CARCINOMA
     Dosage: ON 16/OCT/2019, THE PATIENT RECEIVED THE MOST RECENT DOSE OF ATEZOLIZUMAB PRIOR TO THE EVENT ONSET?(
     Route: 041
     Dates: start: 20191016
  7. LOPERAMIDE [Concomitant]
     Active Substance: LOPERAMIDE
  8. XL184 [Suspect]
     Active Substance: CABOZANTINIB
     Indication: HEPATOCELLULAR CARCINOMA
     Route: 048
     Dates: start: 20191016
  9. THYROXINE [Concomitant]
     Active Substance: LEVOTHYROXINE

REACTIONS (1)
  - Encephalopathy [Recovered/Resolved]

NARRATIVE: CASE EVENT DATE: 20201222
